FAERS Safety Report 4666161-4 (Version None)
Quarter: 2005Q2

REPORT INFORMATION
  Report Type: 
  Country: None (occurrence: None)
  Receive Date: 20050517
  Receipt Date: 20050517
  Transmission Date: 20051028
  Serious: No
  Sender: FDA-Public Use
  Company Number: None

PATIENT
  Age: 50 Year
  Sex: Female
  Weight: 63.5036 kg

DRUGS (1)
  1. DISPERMOX [Suspect]
     Indication: TOOTH INFECTION
     Dosage: 600   ONCE    ORAL
     Route: 048
     Dates: start: 20050513, end: 20050513

REACTIONS (5)
  - BLOOD PRESSURE DECREASED [None]
  - DIZZINESS [None]
  - FLUSHING [None]
  - PARAESTHESIA ORAL [None]
  - SUPRAVENTRICULAR TACHYCARDIA [None]
